FAERS Safety Report 4748196-6 (Version None)
Quarter: 2005Q3

REPORT INFORMATION
  Report Type: 
  Country: None (occurrence: None)
  Receive Date: 20050818
  Receipt Date: 20050809
  Transmission Date: 20060218
  Serious: Yes (Hospitalization)
  Sender: FDA-Public Use
  Company Number: US-JNJFOC-20050701389

PATIENT
  Sex: Male

DRUGS (5)
  1. RISPERDAL [Suspect]
     Indication: AGGRESSION
     Route: 048
  2. ADDERALL 30 [Concomitant]
  3. ADDERALL 30 [Concomitant]
  4. ADDERALL 30 [Concomitant]
  5. ADDERALL 30 [Concomitant]

REACTIONS (1)
  - DIABETES MELLITUS INSULIN-DEPENDENT [None]
